FAERS Safety Report 6736509-5 (Version None)
Quarter: 2010Q2

REPORT INFORMATION
  Report Type: 
  Country: None (occurrence: None)
  Receive Date: 20100519
  Receipt Date: 20100503
  Transmission Date: 20101027
  Serious: Yes (Death, Hospitalization)
  Sender: FDA-Public Use
  Company Number: 2010RR-33624

PATIENT
  Age: 86 Year
  Sex: Male

DRUGS (18)
  1. ACETAMINOPHEN [Suspect]
     Indication: PAIN
     Dosage: 4 GM PER DAY. ORAL
     Route: 048
     Dates: start: 20091013, end: 20091018
  2. CO-CODAMOL [CODEINE PHOSPHATE, PRACETAMOL], UNKNOWN [Suspect]
     Indication: PAIN
     Dosage: ORAL
     Route: 048
     Dates: start: 20091018, end: 20091019
  3. DIGOXIN [Concomitant]
  4. METRONIDAZOLE MOVICAL/01749801/ [Concomitant]
  5. ONDANSETRON [Concomitant]
  6. PABRINEX/00636301/ [Concomitant]
  7. RAMIPRIL [Concomitant]
  8. SIMVASTATIN [Concomitant]
  9. SPIRONOLACTONE [Concomitant]
  10. VITAMIN B COMPOUND STRONG AND ASCORBIC ACID [Concomitant]
  11. CODEINE SULFATE [Concomitant]
  12. OMEPRAZOLE [Concomitant]
  13. BENZYL PENICILLIN [Concomitant]
  14. BISOPROLOL [Concomitant]
  15. BUMETANIDE [Concomitant]
  16. CHLORIDAZEPOXIDE [Concomitant]
  17. CYCLIZINE [Concomitant]
  18. MOVICAL [Concomitant]

REACTIONS (7)
  - ACIDOSIS [None]
  - ALANINE AMINOTRANSFERASE INCREASED [None]
  - ALCOHOL USE [None]
  - ATRIAL FIBRILLATION [None]
  - HEPATIC NECROSIS [None]
  - OVERDOSE [None]
  - VOMITING [None]
